FAERS Safety Report 9316201 (Version 1)
Quarter: 2013Q2

REPORT INFORMATION
  Report Type: Spontaneous
  Country: US (occurrence: US)
  Receive Date: 20130530
  Receipt Date: 20130530
  Transmission Date: 20140414
  Serious: Yes (Hospitalization, Other)
  Sender: FDA-Public Use
  Company Number: PHEH2013US011644

PATIENT
  Sex: Male

DRUGS (2)
  1. TRILEPTAL [Suspect]
  2. PAXIL [Concomitant]

REACTIONS (7)
  - Systemic lupus erythematosus [Unknown]
  - Bipolar disorder [Unknown]
  - Insomnia [Unknown]
  - Depression [Unknown]
  - Nervousness [Unknown]
  - Mental disorder [Unknown]
  - Aphagia [Unknown]
